FAERS Safety Report 8151014-X (Version None)
Quarter: 2012Q1

REPORT INFORMATION
  Report Type: 
  Country: None (occurrence: None)
  Receive Date: 20120220
  Receipt Date: 20120209
  Transmission Date: 20120608
  Serious: Yes (Hospitalization)
  Sender: FDA-Public Use
  Company Number: US-BRISTOL-MYERS SQUIBB COMPANY-16391328

PATIENT
  Age: 39 Year
  Sex: Male
  Weight: 79 kg

DRUGS (1)
  1. IPILIMUMAB [Suspect]
     Indication: MALIGNANT MELANOMA
     Dosage: LAST 10JAN12. CYC:  21 DAYS 10MG/KG IV OVER 90 MIN ON DAY 1, Q12 WEEK FOR MAINTENANCE. COURSE 8
     Dates: start: 20110727

REACTIONS (2)
  - MYALGIA [None]
  - DIARRHOEA [None]
